APPROVED DRUG PRODUCT: DEMADEX
Active Ingredient: TORSEMIDE
Strength: 100MG **Federal Register determination that product was not discontinued or withdrawn for safety or effectiveness reasons**
Dosage Form/Route: TABLET;ORAL
Application: N020136 | Product #004
Applicant: PHARMOBEDIENT CONSULTING LLC
Approved: Aug 23, 1993 | RLD: Yes | RS: No | Type: DISCN